FAERS Safety Report 18228325 (Version 4)
Quarter: 2021Q1

REPORT INFORMATION
  Report Type: Spontaneous
  Country: JP (occurrence: JP)
  Receive Date: 20200903
  Receipt Date: 20210104
  Transmission Date: 20210419
  Serious: Yes (Other)
  Sender: FDA-Public Use
  Company Number: JP-OTSUKA-2020_020913

PATIENT
  Age: 82 Year
  Sex: Female

DRUGS (12)
  1. FUROSEMIDE. [Concomitant]
     Active Substance: FUROSEMIDE
     Dosage: 20 MG, QD
     Route: 042
     Dates: start: 20200302
  2. POTASSIUM CANRENOATE [Concomitant]
     Active Substance: CANRENOATE POTASSIUM
     Indication: PLEURAL EFFUSION
     Dosage: 200 MG, QD
     Route: 042
     Dates: start: 20200227
  3. IMIDAPRIL [Concomitant]
     Active Substance: IMIDAPRIL
     Dosage: 5 UNK, BID
     Route: 048
     Dates: start: 20200420
  4. IMIDAPRIL [Concomitant]
     Active Substance: IMIDAPRIL
     Dosage: 10 MG, QD
     Route: 048
     Dates: start: 20200318, end: 20200325
  5. MAINTATE [Concomitant]
     Active Substance: BISOPROLOL FUMARATE
     Indication: PRODUCT USED FOR UNKNOWN INDICATION
     Dosage: 0.625 MG, QD
     Route: 048
     Dates: start: 20200311
  6. ISOSORBIDE DINITRATE. [Concomitant]
     Active Substance: ISOSORBIDE DINITRATE
     Indication: PRODUCT USED FOR UNKNOWN INDICATION
     Dosage: 40 MG, QD
     Route: 062
     Dates: start: 20200227
  7. FUROSEMIDE. [Concomitant]
     Active Substance: FUROSEMIDE
     Indication: PRODUCT USED FOR UNKNOWN INDICATION
     Dosage: 20 MG, QD
     Route: 048
     Dates: start: 20200303, end: 20200304
  8. FUROSEMIDE. [Concomitant]
     Active Substance: FUROSEMIDE
     Dosage: 40 MG, QD
     Route: 048
     Dates: start: 20200305
  9. ALDACTONE [Concomitant]
     Active Substance: SPIRONOLACTONE
     Indication: PRODUCT USED FOR UNKNOWN INDICATION
     Dosage: 25 MG, QD
     Route: 048
     Dates: start: 20200303
  10. IMIDAPRIL [Concomitant]
     Active Substance: IMIDAPRIL
     Indication: PRODUCT USED FOR UNKNOWN INDICATION
     Dosage: 5 MG, QD
     Route: 048
     Dates: start: 20200302, end: 20200314
  11. FUROSEMIDE. [Concomitant]
     Active Substance: FUROSEMIDE
     Indication: PLEURAL EFFUSION
     Dosage: 40 MG, QD
     Route: 042
     Dates: start: 20200227, end: 20200301
  12. SAMSCA [Suspect]
     Active Substance: TOLVAPTAN
     Indication: CARDIAC FAILURE
     Dosage: 3.75 MG, QD
     Route: 048
     Dates: start: 20200302, end: 20200311

REACTIONS (2)
  - Prescribed underdose [Unknown]
  - Hepatic function abnormal [Recovered/Resolved]

NARRATIVE: CASE EVENT DATE: 20200311
